FAERS Safety Report 4419719-1 (Version None)
Quarter: 2004Q3

REPORT INFORMATION
  Report Type: 
  Country: None (occurrence: None)
  Receive Date: 20040805
  Receipt Date: 20040805
  Transmission Date: 20050211
  Serious: Yes (Disabling, Other)
  Sender: FDA-Public Use
  Company Number: None

PATIENT
  Age: 29 Year
  Sex: Female
  Weight: 108.8633 kg

DRUGS (2)
  1. EFFEXOR XR [Suspect]
     Indication: ANXIETY
     Dosage: 75 MG  Q DAY  ORAL
     Route: 048
  2. EFFEXOR XR [Suspect]
     Indication: PANIC DISORDER
     Dosage: 75 MG  Q DAY  ORAL
     Route: 048

REACTIONS (6)
  - CRYING [None]
  - DRUG DEPENDENCE [None]
  - DRUG WITHDRAWAL SYNDROME [None]
  - FEELING JITTERY [None]
  - IRRITABILITY [None]
  - WEIGHT INCREASED [None]
